FAERS Safety Report 9206222 (Version 1)
Quarter: 2013Q2

REPORT INFORMATION
  Report Type: Spontaneous
  Country: US (occurrence: US)
  Receive Date: 20130403
  Receipt Date: 20130403
  Transmission Date: 20140414
  Serious: Yes (Other)
  Sender: FDA-Public Use
  Company Number: US-PFIZER INC-2013104645

PATIENT
  Sex: Male
  Weight: 93 kg

DRUGS (7)
  1. NEURONTIN [Suspect]
     Dosage: UNK
     Dates: end: 2007
  2. METOPROLOL [Concomitant]
     Indication: CARDIAC DISORDER
     Dosage: 25 MG, 1X/DAY
  3. LISINOPRIL [Concomitant]
     Indication: HYPERTENSION
     Dosage: 10 MG, 2X/DAY
  4. LOVASTATIN [Concomitant]
     Indication: BLOOD CHOLESTEROL INCREASED
     Dosage: 20 MG, 2X/DAY
  5. DICLOFENAC [Concomitant]
     Dosage: 75 MG, 2X/DAY
  6. TIZANIDINE [Concomitant]
     Dosage: 4 MG, 3X/DAY
  7. BABY ASPIRIN [Concomitant]
     Dosage: UNK

REACTIONS (2)
  - Oedema peripheral [Unknown]
  - Drug ineffective [Unknown]
